FAERS Safety Report 9452508 (Version 2)
Quarter: 2013Q4

REPORT INFORMATION
  Report Type: Spontaneous
  Country: US (occurrence: US)
  Receive Date: 20130812
  Receipt Date: 20131025
  Transmission Date: 20140711
  Serious: No
  Sender: FDA-Public Use
  Company Number: US-PFIZER INC-2013231511

PATIENT
  Sex: Male
  Weight: 100 kg

DRUGS (4)
  1. ADVIL COLD AND SINUS [Suspect]
     Indication: SINUS DISORDER
     Dosage: 200 MG, AS NEEDED
     Route: 048
  2. ADVIL COLD AND SINUS [Suspect]
     Indication: DYSPNOEA
  3. ASPIRIN [Concomitant]
     Dosage: 81 MG, DAILY
  4. POTASSIUM [Concomitant]
     Dosage: UNK

REACTIONS (1)
  - Drug ineffective [Unknown]
